FAERS Safety Report 5023560-9 (Version None)
Quarter: 2006Q2

REPORT INFORMATION
  Report Type: 
  Country: None (occurrence: None)
  Receive Date: 20060612
  Receipt Date: 20050504
  Transmission Date: 20061013
  Serious: Yes (Other)
  Sender: FDA-Public Use
  Company Number: PH-ROCHE-403922

PATIENT
  Age: 63 Year
  Sex: Female

DRUGS (2)
  1. CAPECITABINE [Suspect]
     Indication: BREAST CANCER
     Dosage: FREQUENCY NOT REPORTED.
     Route: 048
     Dates: start: 20050119
  2. IXABEPILONE [Suspect]
     Indication: BREAST CANCER
     Dosage: FREQUENCY NOT REPORTED.
     Route: 042
     Dates: start: 20050119

REACTIONS (2)
  - SUPRAVENTRICULAR EXTRASYSTOLES [None]
  - VENTRICULAR DYSFUNCTION [None]
